FAERS Safety Report 23327358 (Version 1)
Quarter: 2023Q4

REPORT INFORMATION
  Report Type: Report from Study
  Country: CN (occurrence: CN)
  Receive Date: 20231221
  Receipt Date: 20231221
  Transmission Date: 20240109
  Serious: No
  Sender: FDA-Public Use
  Company Number: CN-PFIZER INC-PV202300204156

PATIENT
  Age: 92 Year
  Sex: Female

DRUGS (2)
  1. NIRMATRELVIR\RITONAVIR [Suspect]
     Active Substance: NIRMATRELVIR\RITONAVIR
     Indication: COVID-19
     Dosage: UNK, 2X/DAY (BID)
     Route: 048
     Dates: start: 20220331, end: 20220404
  2. NIRMATRELVIR\RITONAVIR [Suspect]
     Active Substance: NIRMATRELVIR\RITONAVIR
     Dosage: [NIRMATRELVIR 300MG]/[RITONAVIR 100MG], 2X/DAY (BID)
     Route: 048
     Dates: start: 20220408, end: 20220412

REACTIONS (1)
  - Inappropriate schedule of product administration [Unknown]
